FAERS Safety Report 12701982 (Version 1)
Quarter: 2016Q3

REPORT INFORMATION
  Report Type: Spontaneous
  Country: US (occurrence: US)
  Receive Date: 20160831
  Receipt Date: 20160831
  Transmission Date: 20161109
  Serious: No
  Sender: FDA-Public Use
  Company Number: US-BAYER-2016-168078

PATIENT
  Age: 91 Year
  Sex: Female
  Weight: 61.22 kg

DRUGS (4)
  1. AMLODIPINE [Concomitant]
     Active Substance: AMLODIPINE BESYLATE
  2. MIRALAX [Suspect]
     Active Substance: POLYETHYLENE GLYCOL 3350
     Indication: GASTROINTESTINAL DISORDER
     Dosage: 2 DF, ONCE
     Route: 048
     Dates: start: 20160826, end: 20160826
  3. TULIP [ATORVASTATIN CALCIUM] [Concomitant]
  4. OMEPRAZOLE. [Concomitant]
     Active Substance: OMEPRAZOLE

REACTIONS (3)
  - Product use issue [None]
  - Product use issue [None]
  - Product use issue [None]

NARRATIVE: CASE EVENT DATE: 201608
